FAERS Safety Report 4875678-9 (Version None)
Quarter: 2006Q1

REPORT INFORMATION
  Report Type: 
  Country: None (occurrence: None)
  Receive Date: 20060109
  Receipt Date: 20051229
  Transmission Date: 20060701
  Serious: Yes (Life-Threatening)
  Sender: FDA-Public Use
  Company Number: DE-JNJFOC-20051103880

PATIENT
  Age: 70 Year
  Sex: Male

DRUGS (8)
  1. RISPERDAL [Suspect]
     Route: 048
  2. RISPERDAL [Suspect]
     Route: 048
  3. RISPERDAL [Suspect]
     Route: 048
  4. RISPERDAL [Suspect]
     Route: 048
  5. RISPERDAL [Suspect]
     Indication: DRUG USE FOR UNKNOWN INDICATION
     Route: 048
  6. DELIX [Concomitant]
     Route: 048
  7. METFORMIN [Concomitant]
     Route: 048
  8. INSULIN [Concomitant]

REACTIONS (3)
  - COLD SWEAT [None]
  - DYSPNOEA [None]
  - HEMIPARESIS [None]
